FAERS Safety Report 8714712 (Version 4)
Quarter: 2013Q3

REPORT INFORMATION
  Report Type: Spontaneous
  Country: US (occurrence: US)
  Receive Date: 20120809
  Receipt Date: 20130925
  Transmission Date: 20140515
  Serious: Yes (Hospitalization)
  Sender: FDA-Public Use
  Company Number: US-BAYER-2012-079017

PATIENT
  Age: 19 Year
  Sex: Female
  Weight: 72.56 kg

DRUGS (3)
  1. YAZ [Suspect]
     Dosage: UNK
     Dates: start: 201101, end: 20110331
  2. BEYAZ [Suspect]
     Indication: ACNE
     Dosage: UNK
     Dates: start: 20101222, end: 20110331
  3. BEYAZ [Suspect]
     Indication: PREMENSTRUAL SYNDROME

REACTIONS (4)
  - Pulmonary embolism [None]
  - Injury [None]
  - Pain [None]
  - Pain [None]
